FAERS Safety Report 8272066-2 (Version None)
Quarter: 2012Q2

REPORT INFORMATION
  Report Type: 
  Country: None (occurrence: None)
  Receive Date: 20120410
  Receipt Date: 20120330
  Transmission Date: 20120825
  Serious: Yes (Hospitalization, Other)
  Sender: FDA-Public Use
  Company Number: JP-JNJFOC-20110803336

PATIENT
  Sex: Male

DRUGS (3)
  1. REMICADE [Suspect]
     Dosage: 11TH INFUSION
     Route: 042
     Dates: start: 20110428
  2. REMICADE [Suspect]
     Route: 042
     Dates: start: 20100201
  3. REMICADE [Suspect]
     Indication: CROHN'S DISEASE
     Route: 042
     Dates: start: 20100218

REACTIONS (5)
  - INTESTINAL ULCER [None]
  - BACTERAEMIA [None]
  - SEPSIS [None]
  - SMALL INTESTINAL RESECTION [None]
  - INFECTIVE SPONDYLITIS [None]
